FAERS Safety Report 6256966-0 (Version None)
Quarter: 2009Q3

REPORT INFORMATION
  Report Type: 
  Country: None (occurrence: None)
  Receive Date: 20090701
  Receipt Date: 20090701
  Transmission Date: 20100115
  Serious: No
  Sender: FDA-Public Use
  Company Number: None

PATIENT
  Age: 87 Year
  Sex: Female
  Weight: 54.4316 kg

DRUGS (2)
  1. AVELOX [Suspect]
     Indication: BRONCHITIS
     Dosage: 400 MG 1 PER DAY
     Dates: start: 20090626, end: 20090629
  2. AVELOX [Suspect]
     Indication: PNEUMONIA
     Dosage: 400 MG 1 PER DAY
     Dates: start: 20090626, end: 20090629

REACTIONS (7)
  - ANXIETY [None]
  - FEELING HOT [None]
  - INSOMNIA [None]
  - MUSCULOSKELETAL STIFFNESS [None]
  - PARANOIA [None]
  - SPEECH DISORDER [None]
  - TREMOR [None]
